FAERS Safety Report 6294190-6 (Version None)
Quarter: 2009Q3

REPORT INFORMATION
  Report Type: 
  Country: None (occurrence: None)
  Receive Date: 20090803
  Receipt Date: 20090212
  Transmission Date: 20100115
  Serious: No
  Sender: FDA-Public Use
  Company Number: A0768446A

PATIENT
  Age: 50 Year
  Sex: Male

DRUGS (1)
  1. NICORETTE (MINT) [Suspect]
     Dates: start: 20090206, end: 20090209

REACTIONS (2)
  - CHEST DISCOMFORT [None]
  - PALPITATIONS [None]
